FAERS Safety Report 6504625-9 (Version None)
Quarter: 2009Q4

REPORT INFORMATION
  Report Type: 
  Country: None (occurrence: None)
  Receive Date: 20091217
  Receipt Date: 20091216
  Transmission Date: 20100525
  Serious: Yes (Other)
  Sender: FDA-Public Use
  Company Number: US-ASTRAZENECA-2009UW20445

PATIENT
  Age: 13739 Day
  Sex: Male
  Weight: 127 kg

DRUGS (3)
  1. SEROQUEL [Suspect]
     Indication: BIPOLAR DISORDER
     Route: 048
     Dates: start: 20070724, end: 20071201
  2. ZOLOFT [Concomitant]
     Indication: DEPRESSION
     Dates: start: 20070101, end: 20080101
  3. WELLBUTRIN XL [Concomitant]
     Indication: DEPRESSION
     Dates: start: 20070101, end: 20080101

REACTIONS (3)
  - DIABETIC NEPHROPATHY [None]
  - OBESITY [None]
  - TYPE 2 DIABETES MELLITUS [None]
